FAERS Safety Report 22620609 (Version 1)
Quarter: 2023Q2

REPORT INFORMATION
  Report Type: Spontaneous
  Country: US (occurrence: US)
  Receive Date: 20230620
  Receipt Date: 20230620
  Transmission Date: 20230721
  Serious: No
  Sender: FDA-Public Use
  Company Number: US-BAYER-2023A081444

PATIENT
  Age: 33 Year
  Sex: Female

DRUGS (1)
  1. GADAVIST [Suspect]
     Active Substance: GADOBUTROL
     Indication: Magnetic resonance imaging head
     Dosage: UNK, ONCE
     Dates: start: 20230607, end: 20230607

REACTIONS (4)
  - Nausea [None]
  - Hypoaesthesia oral [None]
  - Paraesthesia [None]
  - Feeling hot [None]

NARRATIVE: CASE EVENT DATE: 20230607
